FAERS Safety Report 4503707-0 (Version None)
Quarter: 2004Q4

REPORT INFORMATION
  Report Type: 
  Country: None (occurrence: None)
  Receive Date: 20041115
  Receipt Date: 20041108
  Transmission Date: 20050328
  Serious: Yes (Hospitalization)
  Sender: FDA-Public Use
  Company Number: HQWYE927908SEP04

PATIENT
  Age: 49 Year
  Sex: Male

DRUGS (3)
  1. EFFEXOR [Suspect]
     Indication: DEPRESSION
     Dosage: 37.5 TO 150 MG
     Route: 048
     Dates: start: 20040727, end: 20040901
  2. EFFEXOR [Suspect]
     Indication: DEPRESSION
     Dosage: 75 MG (FREQUENCY UNSPECIFIED)
     Route: 048
  3. MARCUMAR [Concomitant]

REACTIONS (9)
  - ABNORMAL BEHAVIOUR [None]
  - AKINESIA [None]
  - CHILLS [None]
  - ENCOPRESIS [None]
  - EXTRAPYRAMIDAL DISORDER [None]
  - EYE DISORDER [None]
  - INSOMNIA [None]
  - RESTLESSNESS [None]
  - TREMOR [None]
